APPROVED DRUG PRODUCT: TERIL
Active Ingredient: CARBAMAZEPINE
Strength: 100MG/5ML
Dosage Form/Route: SUSPENSION;ORAL
Application: A076729 | Product #001 | TE Code: AB
Applicant: TARO PHARMACEUTICAL INDUSTRIES LTD
Approved: Sep 20, 2004 | RLD: No | RS: No | Type: RX